FAERS Safety Report 4552147-7 (Version None)
Quarter: 2004Q4

REPORT INFORMATION
  Report Type: 
  Country: None (occurrence: None)
  Receive Date: 20041217
  Receipt Date: 20040806
  Transmission Date: 20050328
  Serious: No
  Sender: FDA-Public Use
  Company Number: 2004-BP-05917BP

PATIENT
  Age: 83 Year
  Sex: Female
  Weight: 81.6 kg

DRUGS (7)
  1. SPIRIVA [Suspect]
     Indication: CHRONIC OBSTRUCTIVE AIRWAYS DISEASE
     Dosage: 18 MCG (18 MCG, 1 CAP IHALED QD), IH
     Route: 055
     Dates: start: 20040708
  2. SPIRIVA [Suspect]
     Dosage: 18 MCG (18 MCG, 1 CAP INHALED QD), IH
     Route: 055
  3. PROVENTIL (SALBUTAMOL SULFATE) [Concomitant]
  4. THYROID TAB [Concomitant]
  5. NORVASC [Concomitant]
  6. ALBUTEROL [Concomitant]
  7. UNSPECIFIED BRONCHODILATORS (ALL OTHER THERAPEUTIC [Concomitant]

REACTIONS (2)
  - DIZZINESS [None]
  - OEDEMA PERIPHERAL [None]
